FAERS Safety Report 4821604-8 (Version None)
Quarter: 2005Q4

REPORT INFORMATION
  Report Type: 
  Country: None (occurrence: None)
  Receive Date: 20051103
  Receipt Date: 20051103
  Transmission Date: 20060501
  Serious: Yes (Congenital Anomaly)
  Sender: FDA-Public Use
  Company Number: None

PATIENT
  Age: 49 Year
  Sex: Female
  Weight: 95.2554 kg

DRUGS (1)
  1. VIOXX [Suspect]
     Indication: RHEUMATOID ARTHRITIS
     Dosage: 12.5 MG AS NEEDED

REACTIONS (6)
  - BLOOD PRESSURE ABNORMAL [None]
  - FLUID RETENTION [None]
  - GASTRIC ULCER [None]
  - LETHARGY [None]
  - MELAENA [None]
  - SCLERAL DISCOLOURATION [None]
